FAERS Safety Report 18231818 (Version 3)
Quarter: 2020Q4

REPORT INFORMATION
  Report Type: Spontaneous
  Country: US (occurrence: US)
  Receive Date: 20200904
  Receipt Date: 20201012
  Transmission Date: 20210113
  Serious: Yes (Other)
  Sender: FDA-Public Use
  Company Number: US-ASTRAZENECA-2020SF10308

PATIENT
  Sex: Female

DRUGS (6)
  1. IBRANCE [Suspect]
     Active Substance: PALBOCICLIB
     Route: 048
  2. XELODA [Concomitant]
     Active Substance: CAPECITABINE
  3. CARBOPLATIN. [Concomitant]
     Active Substance: CARBOPLATIN
     Dosage: 50 PERCENT FIRST AND 2 UNITS OF SECOND
     Dates: start: 20200814
  4. FULVESTRANT. [Suspect]
     Active Substance: FULVESTRANT
     Route: 030
  5. GEMZAR [Concomitant]
     Active Substance: GEMCITABINE HYDROCHLORIDE
     Dosage: BABY DOSE
     Dates: start: 20200814
  6. LETROZOLE. [Concomitant]
     Active Substance: LETROZOLE

REACTIONS (6)
  - Drug ineffective [Unknown]
  - Metastases to liver [Unknown]
  - Metastases to bone [Unknown]
  - Breast cancer metastatic [Unknown]
  - Liver function test abnormal [Unknown]
  - Metastases to central nervous system [Unknown]
